FAERS Safety Report 21501236 (Version 2)
Quarter: 2022Q4

REPORT INFORMATION
  Report Type: Spontaneous
  Country: JP (occurrence: JP)
  Receive Date: 20221025
  Receipt Date: 20221110
  Transmission Date: 20230112
  Serious: Yes (Hospitalization, Other)
  Sender: FDA-Public Use
  Company Number: JP-TAKEDA-2022TJP074191

PATIENT
  Age: 6 Decade
  Sex: Female

DRUGS (4)
  1. TEDUGLUTIDE [Suspect]
     Active Substance: TEDUGLUTIDE
     Indication: Short-bowel syndrome
     Dosage: 2.0 MILLIGRAM, QD
     Route: 058
     Dates: start: 20220914
  2. TEDUGLUTIDE [Suspect]
     Active Substance: TEDUGLUTIDE
     Indication: Short-bowel syndrome
     Dosage: 2.0 MILLIGRAM, QD
     Route: 058
     Dates: start: 20220914
  3. TEDUGLUTIDE [Suspect]
     Active Substance: TEDUGLUTIDE
     Indication: Short-bowel syndrome
     Dosage: 2.0 MILLIGRAM, QD
     Route: 058
     Dates: start: 20220914
  4. TEDUGLUTIDE [Suspect]
     Active Substance: TEDUGLUTIDE
     Indication: Short-bowel syndrome
     Dosage: 2.0 MILLIGRAM, QD
     Route: 058
     Dates: start: 20220914

REACTIONS (6)
  - Device related infection [Not Recovered/Not Resolved]
  - Pyrexia [Not Recovered/Not Resolved]
  - Oedema [Recovered/Resolved]
  - Back pain [Unknown]
  - Anaemia [Unknown]
  - Stoma complication [Unknown]

NARRATIVE: CASE EVENT DATE: 20220920
